FAERS Safety Report 6304514-9 (Version None)
Quarter: 2009Q3

REPORT INFORMATION
  Report Type: 
  Country: None (occurrence: None)
  Receive Date: 20090806
  Receipt Date: 20090723
  Transmission Date: 20100115
  Serious: Yes (Other)
  Sender: FDA-Public Use
  Company Number: OPER20090134

PATIENT
  Age: 29 Year
  Sex: Male
  Weight: 79.3795 kg

DRUGS (3)
  1. OPANA ER [Suspect]
     Indication: PAIN
     Dosage: 10 MG, TWICE DAILY
     Dates: start: 20090101
  2. OPANA ER [Suspect]
     Indication: PAIN
     Dosage: 40 MG, TWICE DAILY
     Dates: start: 20081201, end: 20090201
  3. HEART MEDICATIONS [Concomitant]

REACTIONS (2)
  - DRUG DEPENDENCE [None]
  - DRUG WITHDRAWAL SYNDROME [None]
